FAERS Safety Report 5590032-2 (Version None)
Quarter: 2008Q1

REPORT INFORMATION
  Report Type: 
  Country: None (occurrence: None)
  Receive Date: 20080114
  Receipt Date: 20080107
  Transmission Date: 20080703
  Serious: Yes (Hospitalization, Other)
  Sender: FDA-Public Use
  Company Number: US-ELI_LILLY_AND_COMPANY-US200709004936

PATIENT
  Sex: Female
  Weight: 68.027 kg

DRUGS (1)
  1. ZYPREXA [Suspect]

REACTIONS (3)
  - CARDIAC DISORDER [None]
  - PANCREATITIS [None]
  - WEIGHT INCREASED [None]
